FAERS Safety Report 7867943-8 (Version None)
Quarter: 2011Q4

REPORT INFORMATION
  Report Type: 
  Country: None (occurrence: None)
  Receive Date: 20111028
  Receipt Date: 20111021
  Transmission Date: 20120403
  Serious: Yes (Other)
  Sender: FDA-Public Use
  Company Number: US-GENZYME-THYM-1002853

PATIENT

DRUGS (2)
  1. THYMOGLOBULIN [Suspect]
     Indication: TRANSPLANT REJECTION
     Route: 042
  2. THYMOGLOBULIN [Suspect]
     Indication: PROPHYLAXIS AGAINST TRANSPLANT REJECTION
     Route: 042

REACTIONS (2)
  - BRONCHOSPASM [None]
  - TRANSPLANT REJECTION [None]
